FAERS Safety Report 4551111-1 (Version None)
Quarter: 2005Q1

REPORT INFORMATION
  Report Type: 
  Country: None (occurrence: None)
  Receive Date: 20050107
  Receipt Date: 20050103
  Transmission Date: 20050727
  Serious: Yes (Hospitalization, Other)
  Sender: FDA-Public Use
  Company Number: US-2004-029370

PATIENT
  Age: 51 Year
  Sex: Female

DRUGS (1)
  1. BETASERON [Suspect]
     Indication: RELAPSING-REMITTING MULTIPLE SCLEROSIS
     Dosage: 8 MIU, EVERY 2D, SUBCUTANEOUS
     Route: 058
     Dates: start: 20020308

REACTIONS (7)
  - BREAST CANCER FEMALE [None]
  - BREAST NECROSIS [None]
  - IMPLANT SITE INFECTION [None]
  - INJECTION SITE PRURITUS [None]
  - INJECTION SITE RASH [None]
  - INJECTION SITE SWELLING [None]
  - POSTOPERATIVE WOUND COMPLICATION [None]
